FAERS Safety Report 8901543 (Version 2)
Quarter: 2014Q1

REPORT INFORMATION
  Report Type: Spontaneous
  Country: US (occurrence: US)
  Receive Date: 20121108
  Receipt Date: 20140325
  Transmission Date: 20141002
  Serious: No
  Sender: FDA-Public Use
  Company Number: US-VERTEX PHARMACEUTICAL INC.-2012-024099

PATIENT
  Age: 56 Year
  Sex: Male
  Weight: 98 kg

DRUGS (5)
  1. INCIVEK [Suspect]
     Indication: HEPATITIS C
     Dosage: 750 MG, TID
     Route: 048
     Dates: start: 20121030
  2. RIBAVIRIN [Suspect]
     Indication: HEPATITIS C
     Dosage: 600 MG, BID
     Route: 048
     Dates: start: 20121030, end: 20130426
  3. PEGASYS [Suspect]
     Indication: HEPATITIS C
     Dosage: 180 ?G, QW
     Route: 058
     Dates: start: 20121030, end: 20130426
  4. ALLOPURINOL [Concomitant]
     Indication: GOUT
     Dosage: 100 MG, QOD
     Route: 048
  5. HYDROCODONE [Concomitant]
     Indication: PAIN
     Dosage: UNK, PRN
     Route: 048

REACTIONS (15)
  - Tinnitus [Not Recovered/Not Resolved]
  - Influenza like illness [Not Recovered/Not Resolved]
  - Decreased appetite [Recovered/Resolved]
  - Injection site erythema [Not Recovered/Not Resolved]
  - Constipation [Recovered/Resolved]
  - Fatigue [Recovered/Resolved]
  - Rash pruritic [Recovered/Resolved]
  - Anaemia [Unknown]
  - Haemorrhoids [Not Recovered/Not Resolved]
  - Rectal haemorrhage [Not Recovered/Not Resolved]
  - Anorectal discomfort [Not Recovered/Not Resolved]
  - Anal pruritus [Not Recovered/Not Resolved]
  - Proctalgia [Not Recovered/Not Resolved]
  - Diarrhoea [Recovered/Resolved]
  - Nausea [Recovered/Resolved]
